FAERS Safety Report 8041380-8 (Version None)
Quarter: 2012Q1

REPORT INFORMATION
  Report Type: 
  Country: None (occurrence: None)
  Receive Date: 20120112
  Receipt Date: 20120104
  Transmission Date: 20120608
  Serious: Yes (Hospitalization)
  Sender: FDA-Public Use
  Company Number: US-BAYER-2011-053075

PATIENT
  Age: 38 Year
  Sex: Female
  Weight: 77.098 kg

DRUGS (9)
  1. OXYCODONE HCL [Concomitant]
     Dosage: UNK
     Route: 048
     Dates: start: 20070602
  2. MOTRIN [Concomitant]
     Dosage: UNK
     Route: 048
     Dates: start: 20070730
  3. NEUTRA-PHOS [Concomitant]
     Indication: BLOOD PHOSPHORUS DECREASED
     Dosage: UNK UNK, QD
     Route: 048
     Dates: start: 20070530, end: 20070701
  4. FLEXERIL [Concomitant]
     Dosage: UNK
     Route: 048
     Dates: start: 20070730
  5. TORADOL [Concomitant]
  6. YASMIN [Suspect]
     Indication: CONTRACEPTION
     Dosage: UNK
     Route: 048
     Dates: start: 20061001, end: 20070701
  7. CIPROFLOXACIN [Concomitant]
     Dosage: 250 MG, UNK
     Route: 048
     Dates: start: 20070530
  8. PAXIL [Concomitant]
     Indication: ANXIETY
     Dosage: 12.5 MG, UNK
     Route: 048
     Dates: start: 20000701
  9. PERCOCET [Concomitant]
     Dosage: UNK
     Route: 048
     Dates: start: 20070530

REACTIONS (8)
  - DEEP VEIN THROMBOSIS [None]
  - BACK PAIN [None]
  - ANHEDONIA [None]
  - MAY-THURNER SYNDROME [None]
  - PAIN [None]
  - ANXIETY [None]
  - OEDEMA PERIPHERAL [None]
  - HYPERCOAGULATION [None]
